FAERS Safety Report 7147099-X (Version None)
Quarter: 2010Q4

REPORT INFORMATION
  Report Type: 
  Country: None (occurrence: None)
  Receive Date: 20101209
  Receipt Date: 20091210
  Transmission Date: 20110411
  Serious: Yes (Death)
  Sender: FDA-Public Use
  Company Number: US-ACTELION-A-NJ2009-26815

PATIENT

DRUGS (3)
  1. BOSENTAN TABLET 125 MG US [Suspect]
     Indication: PULMONARY ARTERIAL HYPERTENSION
     Dosage: 125 MG, UNK
     Route: 048
  2. BOSENTAN TABLET 125 MG US [Suspect]
     Dosage: 62.5 MG, UNK
     Route: 048
     Dates: start: 20090623
  3. BOSENTAN TABLET 125 MG US [Suspect]
     Dosage: 62.5 MG, UNK
     Route: 048

REACTIONS (5)
  - ABDOMINAL DISCOMFORT [None]
  - DEATH [None]
  - DYSPNOEA [None]
  - EXERCISE TOLERANCE DECREASED [None]
  - HEADACHE [None]
